FAERS Safety Report 9621389 (Version 4)
Quarter: 2014Q1

REPORT INFORMATION
  Report Type: Spontaneous
  Country: US (occurrence: US)
  Receive Date: 20131015
  Receipt Date: 20140108
  Transmission Date: 20141002
  Serious: No
  Sender: FDA-Public Use
  Company Number: US-PFIZER INC-2013291408

PATIENT
  Age: 82 Year
  Sex: Female
  Weight: 63.49 kg

DRUGS (2)
  1. ALAVERT D-12 HOUR ALLERGY + SINUS [Suspect]
     Indication: RHINORRHOEA
     Dosage: 10 MG, AS NEEDED, ON AND OFF
  2. LEVOTHYROXINE [Concomitant]
     Indication: THYROID DISORDER
     Dosage: 0.05 MG, DAILY IN THE MORNING

REACTIONS (1)
  - Drug ineffective [Unknown]
